FAERS Safety Report 10853506 (Version 2)
Quarter: 2016Q1

REPORT INFORMATION
  Report Type: Spontaneous
  Country: GB (occurrence: GB)
  Receive Date: 20150223
  Receipt Date: 20160322
  Transmission Date: 20160525
  Serious: Yes (Other)
  Sender: FDA-Public Use
  Company Number: GB-JNJFOC-20150207020

PATIENT
  Sex: Male

DRUGS (2)
  1. PARACETAMOL [Suspect]
     Active Substance: ACETAMINOPHEN
     Route: 065
  2. PARACETAMOL [Suspect]
     Active Substance: ACETAMINOPHEN
     Indication: SPINAL DISORDER
     Dosage: DOSE: 500 (UNIT UNSPECIFIED)
     Route: 065

REACTIONS (3)
  - Dyspnoea [Unknown]
  - Paralysis [Unknown]
  - Throat tightness [Unknown]
